FAERS Safety Report 5949395-8 (Version None)
Quarter: 2008Q4

REPORT INFORMATION
  Report Type: 
  Country: None (occurrence: None)
  Receive Date: 20081112
  Receipt Date: 20081030
  Transmission Date: 20090506
  Serious: Yes (Other)
  Sender: FDA-Public Use
  Company Number: PHEH2008US06795

PATIENT
  Sex: Female
  Weight: 44.444 kg

DRUGS (4)
  1. RECLAST [Suspect]
     Dosage: UNK
     Dates: start: 20080509
  2. COD-LIVER OIL [Concomitant]
  3. POTASSIUM CHLORIDE [Concomitant]
  4. VITAMIN D [Concomitant]

REACTIONS (9)
  - ABASIA [None]
  - ARTHRALGIA [None]
  - ASTHENIA [None]
  - INSOMNIA [None]
  - MYALGIA [None]
  - PAIN IN EXTREMITY [None]
  - PARAESTHESIA [None]
  - SENSATION OF HEAVINESS [None]
  - TREMOR [None]
